FAERS Safety Report 18613217 (Version 1)
Quarter: 2020Q4

REPORT INFORMATION
  Report Type: Spontaneous
  Country: US (occurrence: US)
  Receive Date: 20201214
  Receipt Date: 20201214
  Transmission Date: 20210114
  Serious: No
  Sender: FDA-Public Use
  Company Number: US-ABBVIE-19K-163-3165576-00

PATIENT
  Sex: Female

DRUGS (1)
  1. IMBRUVICA [Suspect]
     Active Substance: IBRUTINIB
     Indication: PRODUCT USED FOR UNKNOWN INDICATION
     Dosage: 140 MG, UNK
     Route: 048

REACTIONS (12)
  - Fatigue [Unknown]
  - Dyspnoea [Unknown]
  - Dry mouth [Unknown]
  - Decreased appetite [Unknown]
  - Nausea [Unknown]
  - Arthralgia [Unknown]
  - Dysphonia [Unknown]
  - Weight decreased [Unknown]
  - Bone pain [Unknown]
  - Oropharyngeal pain [Unknown]
  - Incorrect dose administered [Unknown]
  - Blood pressure increased [Unknown]
